FAERS Safety Report 9387533 (Version 2)
Quarter: 2013Q3

REPORT INFORMATION
  Report Type: Spontaneous
  Country: US (occurrence: US)
  Receive Date: 20130708
  Receipt Date: 20130719
  Transmission Date: 20140515
  Serious: Yes (Death)
  Sender: FDA-Public Use
  Company Number: US-PFIZER INC-2013197768

PATIENT
  Sex: Female

DRUGS (4)
  1. GLUCOTROL [Suspect]
     Dosage: UNK
  2. GLUCOTROL [Suspect]
     Dosage: UNK
  3. ACCUPRIL [Suspect]
     Dosage: UNK
  4. NORVASC [Suspect]
     Dosage: UNK

REACTIONS (1)
  - Pancreatic carcinoma [Fatal]
